FAERS Safety Report 6579994-4 (Version None)
Quarter: 2010Q1

REPORT INFORMATION
  Report Type: 
  Country: None (occurrence: None)
  Receive Date: 20100212
  Receipt Date: 20100205
  Transmission Date: 20100710
  Serious: Yes (Hospitalization)
  Sender: FDA-Public Use
  Company Number: US-NOVOPROD-304048

PATIENT
  Sex: Female
  Weight: 58.957 kg

DRUGS (1)
  1. NOVOLIN 70/30 [Suspect]
     Indication: TYPE 2 DIABETES MELLITUS
     Dosage: 66 IU, QD (34 IU QAM, 32 IU QPM)
     Route: 058
     Dates: start: 19950101, end: 20091202

REACTIONS (4)
  - HEART RATE DECREASED [None]
  - HYPOGLYCAEMIC UNCONSCIOUSNESS [None]
  - PNEUMONIA [None]
  - PULMONARY OEDEMA [None]
